FAERS Safety Report 11234844 (Version 1)
Quarter: 2015Q3

REPORT INFORMATION
  Report Type: Spontaneous
  Country: BE (occurrence: BE)
  Receive Date: 20150702
  Receipt Date: 20150702
  Transmission Date: 20151125
  Serious: Yes (Other)
  Sender: FDA-Public Use
  Company Number: BE-ASTRAZENECA-2015SE59890

PATIENT
  Age: 572 Month
  Sex: Male
  Weight: 115 kg

DRUGS (7)
  1. EMCONCOR [Concomitant]
     Active Substance: BISOPROLOL FUMARATE
  2. ATORVASTATINE [Concomitant]
     Active Substance: ATORVASTATIN
  3. METFORMAX [Concomitant]
     Active Substance: METFORMIN HYDROCHLORIDE
  4. EZETROL [Concomitant]
     Active Substance: EZETIMIBE
  5. ASAFLOW [Concomitant]
     Active Substance: ASPIRIN
  6. BYDUREON [Suspect]
     Active Substance: EXENATIDE
     Indication: TYPE 2 DIABETES MELLITUS
     Route: 058
     Dates: start: 201501, end: 20150519
  7. AMLOR [Concomitant]
     Active Substance: AMLODIPINE BESYLATE

REACTIONS (3)
  - Injection site pain [Not Recovered/Not Resolved]
  - Injection site nodule [Not Recovered/Not Resolved]
  - Lipodystrophy acquired [Unknown]

NARRATIVE: CASE EVENT DATE: 201501
